FAERS Safety Report 25906723 (Version 4)
Quarter: 2025Q4

REPORT INFORMATION
  Report Type: Spontaneous
  Country: EU (occurrence: EU)
  Receive Date: 20251010
  Receipt Date: 20251218
  Transmission Date: 20260117
  Serious: Yes (Death, Hospitalization)
  Sender: BAUSCH AND LOMB
  Company Number: EU-MLMSERVICE-20250905-PI634365-00275-1

PATIENT
  Age: 76 Year
  Sex: Male

DRUGS (6)
  1. DIAZEPAM [Suspect]
     Active Substance: DIAZEPAM
     Indication: Product used for unknown indication
     Route: 065
  2. GABAPENTIN [Suspect]
     Active Substance: GABAPENTIN
     Indication: Product used for unknown indication
     Route: 065
  3. QUETIAPINE [Suspect]
     Active Substance: QUETIAPINE
     Indication: Product used for unknown indication
     Route: 065
     Dates: start: 202501
  4. TRAZODONE [Suspect]
     Active Substance: TRAZODONE HYDROCHLORIDE
     Indication: Product used for unknown indication
     Route: 065
  5. DULOXETINE HYDROCHLORIDE [Suspect]
     Active Substance: DULOXETINE HYDROCHLORIDE
     Indication: Product used for unknown indication
     Route: 065
  6. LORMETAZEPAM [Suspect]
     Active Substance: LORMETAZEPAM
     Indication: Product used for unknown indication
     Dosage: AT BEDTIME
     Route: 065

REACTIONS (10)
  - Neuroleptic malignant syndrome [Fatal]
  - Multi-organ disorder [Fatal]
  - Hypernatraemia [Fatal]
  - Cardiac arrest [Fatal]
  - Hypocalcaemia [Fatal]
  - Hypoxia [Fatal]
  - Renal failure [Fatal]
  - Haemodynamic instability [Fatal]
  - Hypokalaemia [Fatal]
  - Multiple drug therapy [Fatal]

NARRATIVE: CASE EVENT DATE: 20250101
